FAERS Safety Report 5847685-0 (Version None)
Quarter: 2008Q3

REPORT INFORMATION
  Report Type: 
  Country: None (occurrence: None)
  Receive Date: 20080818
  Receipt Date: 20080805
  Transmission Date: 20090109
  Serious: Yes (Other)
  Sender: FDA-Public Use
  Company Number: GB-AMGEN-UK299573

PATIENT
  Sex: Male

DRUGS (6)
  1. ARANESP [Suspect]
     Indication: RENAL FAILURE CHRONIC
     Route: 058
     Dates: start: 20080220, end: 20080707
  2. NEORECORMON [Suspect]
     Route: 058
     Dates: start: 20080707, end: 20080728
  3. POSACONAZOLE [Concomitant]
     Route: 048
     Dates: start: 20071217
  4. AMLODIPINE [Concomitant]
     Route: 048
     Dates: start: 20080201
  5. OMEPRAZOLE [Concomitant]
     Route: 048
     Dates: start: 20080201
  6. PREDNISOLONE [Concomitant]
     Route: 048
     Dates: start: 20080201

REACTIONS (2)
  - APLASIA PURE RED CELL [None]
  - STREPTOCOCCAL BACTERAEMIA [None]
